FAERS Safety Report 5646376-9 (Version None)
Quarter: 2008Q1

REPORT INFORMATION
  Report Type: 
  Country: None (occurrence: None)
  Receive Date: 20080227
  Receipt Date: 20080227
  Transmission Date: 20080703
  Serious: Yes (Other)
  Sender: FDA-Public Use
  Company Number: None

PATIENT
  Age: 45 Year
  Sex: Male
  Weight: 175 kg

DRUGS (1)
  1. DETROL LA [Suspect]
     Dosage: URETHRAL
     Route: 066

REACTIONS (1)
  - NOCTURIA [None]
